FAERS Safety Report 12357769 (Version 1)
Quarter: 2016Q2

REPORT INFORMATION
  Report Type: Spontaneous
  Country: FR (occurrence: FR)
  Receive Date: 20160512
  Receipt Date: 20160512
  Transmission Date: 20160815
  Serious: Yes (Life-Threatening, Other)
  Sender: FDA-Public Use
  Company Number: FR-009507513-1603FRA008270

PATIENT
  Age: 62 Year
  Sex: Male
  Weight: 77 kg

DRUGS (3)
  1. ESMERON [Suspect]
     Active Substance: ROCURONIUM BROMIDE
     Indication: INDUCTION AND MAINTENANCE OF ANAESTHESIA
     Dosage: 80 MG, UNK
     Route: 042
     Dates: start: 20151220
  2. PROPOFOL. [Concomitant]
     Active Substance: PROPOFOL
     Dosage: 300 MG, UNK
     Route: 042
     Dates: start: 20151220
  3. SUFENTANIL [Concomitant]
     Active Substance: SUFENTANIL
     Dosage: 25 MICROGRAM, ONCE
     Route: 042
     Dates: start: 20151220

REACTIONS (6)
  - Bronchospasm [Recovered/Resolved]
  - Anaphylactic shock [Recovered/Resolved]
  - Myocardial ischaemia [Recovered/Resolved]
  - Bradycardia [Recovered/Resolved]
  - Hypotension [Recovered/Resolved]
  - Erythema [Recovered/Resolved]

NARRATIVE: CASE EVENT DATE: 20151220
